FAERS Safety Report 6065518-7 (Version None)
Quarter: 2009Q1

REPORT INFORMATION
  Report Type: 
  Country: None (occurrence: None)
  Receive Date: 20090204
  Receipt Date: 20090130
  Transmission Date: 20090719
  Serious: Yes (Life-Threatening, Disabling, Other)
  Sender: FDA-Public Use
  Company Number: FR-RB-004085-08

PATIENT
  Age: 42 Year
  Sex: Female

DRUGS (3)
  1. SUBUTEX [Suspect]
     Indication: DRUG USE FOR UNKNOWN INDICATION
     Route: 065
     Dates: start: 19980101
  2. SUBUTEX [Suspect]
     Route: 042
     Dates: start: 20070101
  3. STILNOX [Concomitant]
     Indication: INSOMNIA
     Route: 065
     Dates: start: 19980101

REACTIONS (4)
  - INJECTION SITE ABSCESS [None]
  - INJECTION SITE NECROSIS [None]
  - INSOMNIA [None]
  - SOMNOLENCE [None]
